FAERS Safety Report 9087326 (Version 2)
Quarter: 2013Q2

REPORT INFORMATION
  Report Type: Spontaneous
  Country: CO (occurrence: CO)
  Receive Date: 20130217
  Receipt Date: 20130513
  Transmission Date: 20140414
  Serious: Yes (Other)
  Sender: FDA-Public Use
  Company Number: CO-JNJFOC-20130204335

PATIENT
  Age: 49 Year
  Sex: Male

DRUGS (2)
  1. SIMPONI [Suspect]
     Indication: ANKYLOSING SPONDYLITIS
     Route: 058
     Dates: start: 20130204, end: 20130204
  2. SIMPONI [Suspect]
     Indication: ANKYLOSING SPONDYLITIS
     Route: 058
     Dates: start: 20130102

REACTIONS (5)
  - Gastroenteritis [Unknown]
  - Dermatitis allergic [Unknown]
  - Injection site oedema [Unknown]
  - Injection site inflammation [Unknown]
  - Injection site erythema [Unknown]
